FAERS Safety Report 16035892 (Version 1)
Quarter: 2019Q1

REPORT INFORMATION
  Report Type: Spontaneous
  Country: JP (occurrence: JP)
  Receive Date: 20190305
  Receipt Date: 20190305
  Transmission Date: 20190418
  Serious: Yes (Other)
  Sender: FDA-Public Use
  Company Number: JP-PFIZER INC-2019092210

PATIENT
  Age: 86 Year

DRUGS (3)
  1. DIFLUCAN [Suspect]
     Active Substance: FLUCONAZOLE
     Dosage: 300 MG, UNK
     Route: 048
  2. AMBISOME [Suspect]
     Active Substance: AMPHOTERICIN B
  3. FUNGUARD [Suspect]
     Active Substance: MICAFUNGIN SODIUM

REACTIONS (1)
  - Arrhythmia [Unknown]
